FAERS Safety Report 7700354-4 (Version None)
Quarter: 2011Q3

REPORT INFORMATION
  Report Type: 
  Country: None (occurrence: None)
  Receive Date: 20110822
  Receipt Date: 20110819
  Transmission Date: 20111222
  Serious: Yes (Death)
  Sender: FDA-Public Use
  Company Number: PHFR2011IE03191

PATIENT
  Sex: Male

DRUGS (2)
  1. CLOZAPINE [Suspect]
     Dosage: 550 MG/DAY
     Route: 048
     Dates: start: 20070629
  2. CLOZAPINE [Suspect]
     Indication: SCHIZOPHRENIA
     Dosage: 575 MG/DAY
     Route: 048
     Dates: start: 20070629

REACTIONS (2)
  - DEATH [None]
  - COMPLETED SUICIDE [None]
